FAERS Safety Report 7179851-9 (Version None)
Quarter: 2010Q4

REPORT INFORMATION
  Report Type: 
  Country: None (occurrence: None)
  Receive Date: 20101221
  Receipt Date: 20101221
  Transmission Date: 20110411
  Serious: Yes (Hospitalization)
  Sender: FDA-Public Use
  Company Number: US-ABBOTT-10P-163-0689937-00

PATIENT
  Sex: Female
  Weight: 77.634 kg

DRUGS (3)
  1. LUPRON DEPOT [Suspect]
     Indication: ENDOMETRIOSIS
     Dates: start: 20100901, end: 20100901
  2. LISINOPRIL AND HYDROCHLOROTHIAZIDE [Suspect]
     Indication: HYPERTENSION
     Dosage: 10/12.5 MG ONCE
     Dates: start: 20101027, end: 20101027
  3. LISINOPRIL AND HYDROCHLOROTHIAZIDE [Suspect]
     Dosage: 10/12.5 MG
     Dates: start: 20101029, end: 20101029

REACTIONS (11)
  - BLOOD GLUCOSE DECREASED [None]
  - BLOOD PRESSURE DECREASED [None]
  - BLOOD PRESSURE INCREASED [None]
  - CEREBROVASCULAR ACCIDENT [None]
  - DEHYDRATION [None]
  - DIARRHOEA [None]
  - FALL [None]
  - HEADACHE [None]
  - MALAISE [None]
  - PAIN [None]
  - PNEUMONIA [None]
